FAERS Safety Report 5193422-5 (Version None)
Quarter: 2006Q4

REPORT INFORMATION
  Report Type: 
  Country: None (occurrence: None)
  Receive Date: 20061228
  Receipt Date: 20060418
  Transmission Date: 20070319
  Serious: No
  Sender: FDA-Public Use
  Company Number: US-GLAXOSMITHKLINE-A0602195A

PATIENT
  Age: 56 Year
  Sex: Male

DRUGS (2)
  1. FLONASE [Suspect]
     Indication: EYE INFECTION
     Dosage: 2SPR PER DAY
     Route: 045
     Dates: start: 20040101
  2. UNKNOWN MEDICATION [Concomitant]
     Indication: COLITIS

REACTIONS (2)
  - DRUG INEFFECTIVE [None]
  - TINNITUS [None]
